FAERS Safety Report 7579828-5 (Version None)
Quarter: 2011Q2

REPORT INFORMATION
  Report Type: 
  Country: None (occurrence: None)
  Receive Date: 20110525
  Receipt Date: 20110216
  Transmission Date: 20111010
  Serious: Yes (Other)
  Sender: FDA-Public Use
  Company Number: 320495

PATIENT
  Age: 49 Year
  Sex: Male
  Weight: 99.3 kg

DRUGS (12)
  1. DILTIAZEM [Concomitant]
  2. SIMVASTATIN [Concomitant]
  3. DIOVAN [Concomitant]
  4. INDAPAMIDE [Concomitant]
  5. KLOR-CON [Concomitant]
  6. VICTOZA [Suspect]
     Indication: TYPE 2 DIABETES MELLITUS
     Dosage: SEE IMAGE, SUBCUTANEOUS
     Route: 058
     Dates: start: 20101207, end: 20101207
  7. VICTOZA [Suspect]
     Indication: TYPE 2 DIABETES MELLITUS
     Dosage: SEE IMAGE, SUBCUTANEOUS
     Route: 058
     Dates: start: 20101222, end: 20101228
  8. VICTOZA [Suspect]
     Indication: TYPE 2 DIABETES MELLITUS
     Dosage: SEE IMAGE, SUBCUTANEOUS
     Route: 058
     Dates: start: 20101229
  9. VICTOZA [Suspect]
     Indication: TYPE 2 DIABETES MELLITUS
     Dosage: SEE IMAGE, SUBCUTANEOUS
     Route: 058
     Dates: start: 20101026, end: 20101104
  10. VICTOZA [Suspect]
     Indication: TYPE 2 DIABETES MELLITUS
     Dosage: SEE IMAGE, SUBCUTANEOUS
     Route: 058
     Dates: start: 20101208, end: 20101214
  11. METFORMIN HCL [Concomitant]
  12. JANUVA (SITAGLIPTIN PHOSPHATE) [Concomitant]

REACTIONS (7)
  - DYSPEPSIA [None]
  - NAUSEA [None]
  - DIZZINESS [None]
  - VOMITING [None]
  - ASTHENIA [None]
  - PYREXIA [None]
  - WEIGHT DECREASED [None]
